FAERS Safety Report 15048235 (Version 1)
Quarter: 2018Q2

REPORT INFORMATION
  Report Type: Spontaneous
  Country: GB (occurrence: GB)
  Receive Date: 20180622
  Receipt Date: 20180622
  Transmission Date: 20180711
  Serious: Yes (Disabling)
  Sender: FDA-Public Use
  Company Number: GB-TEVA-2018-GB-910912

PATIENT
  Age: 44 Year
  Sex: Female
  Weight: 91 kg

DRUGS (12)
  1. SITAGLIPTIN [Concomitant]
     Active Substance: SITAGLIPTIN
     Dosage: 1 DOSAGE FORMS DAILY;
     Route: 065
     Dates: start: 20180104
  2. METFORMIN [Concomitant]
     Active Substance: METFORMIN HYDROCHLORIDE
     Dosage: 4 DOSAGE FORMS DAILY;
     Dates: start: 20140618
  3. DIAZEPAM. [Concomitant]
     Active Substance: DIAZEPAM
     Dosage: 3 DOSAGE FORMS DAILY;
     Dates: start: 20180221, end: 20180226
  4. CINCHOCAINE [Concomitant]
     Dosage: 2 DOSAGE FORMS DAILY; APPLY
     Dates: start: 20180216, end: 20180316
  5. CLARITHROMYCIN. [Concomitant]
     Active Substance: CLARITHROMYCIN
     Dosage: 2 DOSAGE FORMS DAILY;
     Dates: start: 20180301, end: 20180308
  6. DOXYCYCLINE. [Suspect]
     Active Substance: DOXYCYCLINE
     Route: 065
     Dates: start: 20180504
  7. ERYTHROMYCIN. [Concomitant]
     Active Substance: ERYTHROMYCIN
     Dosage: 4 DOSAGE FORMS DAILY;
     Dates: start: 20180221, end: 20180228
  8. SIMVASTATIN. [Concomitant]
     Active Substance: SIMVASTATIN
     Dosage: 1 DOSAGE FORMS DAILY; AT NIGHT
     Dates: start: 20150209
  9. CIPROFLOXACIN. [Concomitant]
     Active Substance: CIPROFLOXACIN
     Dosage: 2 DOSAGE FORMS DAILY;
     Dates: start: 20180316, end: 20180323
  10. GLICLAZIDE [Concomitant]
     Active Substance: GLICLAZIDE
     Dosage: 2 DOSAGE FORMS DAILY; WITH BREAKFAST
     Dates: start: 20160614
  11. PREDNISOLONE. [Concomitant]
     Active Substance: PREDNISOLONE
     Dosage: 6 DOSAGE FORMS DAILY;
     Dates: start: 20180301
  12. SALBUTAMOL [Concomitant]
     Active Substance: ALBUTEROL
     Route: 055
     Dates: start: 20180316, end: 20180413

REACTIONS (1)
  - Swelling [Recovering/Resolving]

NARRATIVE: CASE EVENT DATE: 20180508
